FAERS Safety Report 10506534 (Version 3)
Quarter: 2014Q4

REPORT INFORMATION
  Report Type: Report from Study
  Country: FR (occurrence: FR)
  Receive Date: 20141009
  Receipt Date: 20141028
  Transmission Date: 20150528
  Serious: Yes (Hospitalization)
  Sender: FDA-Public Use
  Company Number: FR-ROCHE-1471538

PATIENT
  Age: 64 Year
  Sex: Male
  Weight: 73 kg

DRUGS (17)
  1. MELPHALAN [Concomitant]
     Active Substance: MELPHALAN
  2. PREDNISONE. [Concomitant]
     Active Substance: PREDNISONE
     Indication: LYMPHOMA
     Dosage: 1 CYCLE
     Route: 042
     Dates: start: 20140423, end: 20140423
  3. CISPLATIN. [Concomitant]
     Active Substance: CISPLATIN
  4. ETOPOSIDE. [Concomitant]
     Active Substance: ETOPOSIDE
     Route: 042
     Dates: start: 20140423, end: 20140423
  5. DEXAMETHASONE. [Concomitant]
     Active Substance: DEXAMETHASONE
  6. ARA-C [Concomitant]
     Active Substance: CYTARABINE
  7. HYDROCORTISONE. [Concomitant]
     Active Substance: HYDROCORTISONE
     Route: 048
  8. RITUXIMAB [Suspect]
     Active Substance: RITUXIMAB
     Dosage: 8 CYCLES
     Route: 041
     Dates: start: 20120710, end: 20130827
  9. CORDARONE [Concomitant]
     Active Substance: AMIODARONE HYDROCHLORIDE
     Dosage: 1/5DAYS/WEEK
     Route: 048
  10. KARDEGIC [Concomitant]
     Active Substance: ASPIRIN LYSINE
     Route: 048
  11. CYCLOPHOSPHAMIDE. [Concomitant]
     Active Substance: CYCLOPHOSPHAMIDE
     Indication: LYMPHOMA
     Dosage: 1 CYCLE
     Route: 042
     Dates: start: 20140423, end: 20140423
  12. DIGOXINE [Concomitant]
     Active Substance: DIGOXIN
     Dosage: 1/5DAYS/WEEK
     Route: 048
  13. ZELITREX [Concomitant]
     Active Substance: VALACYCLOVIR HYDROCHLORIDE
     Route: 048
  14. DOXORUBICIN [Concomitant]
     Active Substance: DOXORUBICIN
     Indication: LYMPHOMA
     Dosage: 1 CYCLE
     Route: 042
     Dates: start: 20140423, end: 20140423
  15. RITUXIMAB [Suspect]
     Active Substance: RITUXIMAB
     Indication: MANTLE CELL LYMPHOMA
     Route: 041
     Dates: start: 20111104
  16. CARMUSTINE [Concomitant]
     Active Substance: CARMUSTINE
  17. ETOPOSIDE. [Concomitant]
     Active Substance: ETOPOSIDE
     Indication: LYMPHOMA
     Route: 048
     Dates: start: 20140620, end: 20140802

REACTIONS (1)
  - Rectal adenocarcinoma [Not Recovered/Not Resolved]

NARRATIVE: CASE EVENT DATE: 20140402
